FAERS Safety Report 14253464 (Version 1)
Quarter: 2017Q4

REPORT INFORMATION
  Report Type: Spontaneous
  Country: CA (occurrence: CA)
  Receive Date: 20171206
  Receipt Date: 20171206
  Transmission Date: 20180321
  Serious: Yes (Hospitalization)
  Sender: FDA-Public Use
  Company Number: CA-ACCORD-061583

PATIENT
  Age: 53 Year
  Sex: Male

DRUGS (7)
  1. FLUOROURACIL. [Suspect]
     Active Substance: FLUOROURACIL
     Indication: COLON CANCER STAGE III
     Dosage: 400 MG/M^2 BOLUS ON DAY 1 FOLLOWED BY 2400 MG/M^2 BY CONTINUOUS INFUSION OVER THE NEXT 46 HOURS
  2. ATORVASTATIN [Concomitant]
     Active Substance: ATORVASTATIN
     Route: 048
  3. FOLINIC ACID [Concomitant]
     Active Substance: LEUCOVORIN
     Indication: COLON CANCER STAGE III
     Dosage: BOLUS ON DAY 1
  4. AMLODIPINE [Concomitant]
     Active Substance: AMLODIPINE BESYLATE
     Route: 048
  5. QUINAPRIL. [Concomitant]
     Active Substance: QUINAPRIL
     Route: 048
  6. HYDROCHLOROTHIAZIDE. [Concomitant]
     Active Substance: HYDROCHLOROTHIAZIDE
     Route: 048
  7. OXALIPLATIN. [Concomitant]
     Active Substance: OXALIPLATIN
     Indication: COLON CANCER STAGE III
     Dosage: BOLUS ON DAY 1?LATER DOSE WAS INCREASED TO 130 MG/M^2

REACTIONS (3)
  - Leukocytosis [Unknown]
  - Metabolic encephalopathy [Recovered/Resolved]
  - Metabolic acidosis [Unknown]
